FAERS Safety Report 16754670 (Version 1)
Quarter: 2019Q3

REPORT INFORMATION
  Report Type: Spontaneous
  Country: US (occurrence: US)
  Receive Date: 20190829
  Receipt Date: 20190829
  Transmission Date: 20191005
  Serious: No
  Sender: FDA-Public Use
  Company Number: US-CELGENEUS-USA-20190806476

PATIENT
  Age: 57 Year
  Sex: Male

DRUGS (2)
  1. OTEZLA [Suspect]
     Active Substance: APREMILAST
     Indication: PSORIASIS
     Dosage: 60 MILLIGRAM
     Route: 048
     Dates: start: 201908
  2. OTEZLA [Suspect]
     Active Substance: APREMILAST
     Indication: PSORIASIS
     Dosage: 10 MG, 20 MG, 30 MG
     Route: 048
     Dates: start: 20190712

REACTIONS (7)
  - Presyncope [Unknown]
  - Abdominal pain upper [Unknown]
  - Therapy non-responder [Unknown]
  - Nausea [Recovering/Resolving]
  - Headache [Unknown]
  - Eczema [Unknown]
  - Dizziness [Unknown]

NARRATIVE: CASE EVENT DATE: 20190816
